FAERS Safety Report 23643459 (Version 1)
Quarter: 2024Q1

REPORT INFORMATION
  Report Type: Spontaneous
  Country: US (occurrence: US)
  Receive Date: 20240318
  Receipt Date: 20240318
  Transmission Date: 20240409
  Serious: Yes (Death)
  Sender: FDA-Public Use
  Company Number: US-002147023-NVSC2024US057494

PATIENT
  Age: 63 Year
  Sex: Female

DRUGS (1)
  1. TYKERB [Suspect]
     Active Substance: LAPATINIB DITOSYLATE
     Indication: Breast cancer female
     Dosage: 1000 MG, QD
     Route: 048
     Dates: start: 202312

REACTIONS (1)
  - Death [Fatal]

NARRATIVE: CASE EVENT DATE: 20240229
